FAERS Safety Report 17949458 (Version 1)
Quarter: 2020Q2

REPORT INFORMATION
  Report Type: Spontaneous
  Country: IT (occurrence: IT)
  Receive Date: 20200625
  Receipt Date: 20200625
  Transmission Date: 20200714
  Serious: Yes (Other)
  Sender: FDA-Public Use
  Company Number: NVSC2020IT176891

PATIENT

DRUGS (1)
  1. EVEROLIMUS. [Suspect]
     Active Substance: EVEROLIMUS
     Indication: POLYOMAVIRUS-ASSOCIATED NEPHROPATHY
     Route: 065

REACTIONS (2)
  - Kidney transplant rejection [Unknown]
  - Product use in unapproved indication [Unknown]
